FAERS Safety Report 24410405 (Version 1)
Quarter: 2024Q4

REPORT INFORMATION
  Report Type: Spontaneous
  Country: IT (occurrence: IT)
  Receive Date: 20241008
  Receipt Date: 20241008
  Transmission Date: 20250114
  Serious: Yes (Other)
  Sender: RANBAXY
  Company Number: IT-SUN PHARMACEUTICAL INDUSTRIES LTD-2024RR-471930

PATIENT
  Age: 50 Year
  Sex: Male
  Weight: 69 kg

DRUGS (14)
  1. CYCLOSPORINE [Suspect]
     Active Substance: CYCLOSPORINE
     Indication: Febrile bone marrow aplasia
     Dosage: 100 MG 1 TABLET 2 TIMES A DAY
     Route: 048
     Dates: start: 20240506, end: 20240529
  2. ELTROMBOPAG OLAMINE [Suspect]
     Active Substance: ELTROMBOPAG OLAMINE
     Indication: Febrile bone marrow aplasia
     Dosage: 50 MG 3 TABLETS PER DAY
     Route: 048
     Dates: start: 20240506, end: 20240529
  3. TRANEXAMIC ACID [Concomitant]
     Active Substance: TRANEXAMIC ACID
     Indication: Aplastic anaemia
     Dosage: 500 MG 2 VIALS 3 TIMES A DAY
     Route: 048
  4. PIPERACILLIN SODIUM\TAZOBACTAM SODIUM [Concomitant]
     Active Substance: PIPERACILLIN SODIUM\TAZOBACTAM SODIUM
     Indication: Antibiotic prophylaxis
     Dosage: 4.5 G 3 TIMES A DAY
     Route: 065
     Dates: start: 20240424, end: 20240506
  5. METHYLPREDNISOLONE [Concomitant]
     Active Substance: METHYLPREDNISOLONE
     Indication: Allergy prophylaxis
     Dosage: 40 MG  2 TIMES A DAY
     Route: 048
     Dates: start: 20240506
  6. FEBUXOSTAT [Concomitant]
     Active Substance: FEBUXOSTAT
     Indication: Hyperuricaemia
     Dosage: 80 MG 1 TABLETS PER DAY
     Route: 048
  7. ERYTHROPOIETIN [Concomitant]
     Active Substance: ERYTHROPOIETIN
     Indication: Aplastic anaemia
     Dosage: 40,000 UI 1 SUBCUTANEOUS VIAL EVERY 7 DAYS
     Route: 065
     Dates: start: 20240506
  8. FILGRASTIM [Concomitant]
     Active Substance: FILGRASTIM
     Indication: Pancytopenia
     Dosage: 30/0,5 MU 1 VIAL UNDER THE SKIN 2 TIMES A DAY
     Route: 065
     Dates: start: 20240506
  9. AMIKACIN [Concomitant]
     Active Substance: AMIKACIN
     Indication: Antibiotic prophylaxis
     Dosage: 1 G PER DAY
     Route: 065
     Dates: start: 20240424, end: 20240506
  10. FLUCONAZOLE [Concomitant]
     Active Substance: FLUCONAZOLE
     Indication: Antifungal prophylaxis
     Dosage: 200 MG 1 CPS AL GIORNO
     Route: 048
  11. ACYCLOVIR [Concomitant]
     Active Substance: ACYCLOVIR
     Indication: Antiviral prophylaxis
     Dosage: 400 MG 1 TABLET TWICE A DAY
     Route: 048
  12. BACTRIM [Concomitant]
     Active Substance: SULFAMETHOXAZOLE\TRIMETHOPRIM
     Indication: Antibiotic prophylaxis
     Dosage: 800 MG+160MG 1 TABLET 2 TIMES A DAY ON MONDAYS AND FRIDAYS
     Route: 048
  13. LEVOFLOXACIN [Concomitant]
     Active Substance: LEVOFLOXACIN
     Indication: Antibiotic prophylaxis
     Dosage: 500 MG 1 TABLET 2 TIMES A DAY
     Route: 048
  14. ESOMEPRAZOLE [Concomitant]
     Active Substance: ESOMEPRAZOLE
     Indication: Gastritis prophylaxis
     Dosage: 40 MG 1 TABLETS PER DAY
     Route: 048

REACTIONS (2)
  - Atrial fibrillation [Recovered/Resolved]
  - Blood bilirubin increased [Recovered/Resolved]

NARRATIVE: CASE EVENT DATE: 20240513
